FAERS Safety Report 18598400 (Version 1)
Quarter: 2020Q4

REPORT INFORMATION
  Report Type: Report from Study
  Country: DE (occurrence: DE)
  Receive Date: 20201210
  Receipt Date: 20201210
  Transmission Date: 20210114
  Serious: Yes (Death, Other)
  Sender: FDA-Public Use
  Company Number: DE-BRISTOL-MYERS SQUIBB COMPANY-BMS-2020-085508

PATIENT
  Age: 59 Year
  Sex: Male

DRUGS (11)
  1. NIVOLUMAB [Suspect]
     Active Substance: NIVOLUMAB
     Dosage: 240 MILLIGRAM
     Route: 065
     Dates: start: 20191025
  2. NIVOLUMAB [Suspect]
     Active Substance: NIVOLUMAB
     Dosage: 240 MILLIGRAM
     Route: 065
     Dates: start: 20191122
  3. NIVOLUMAB [Suspect]
     Active Substance: NIVOLUMAB
     Indication: MALIGNANT MELANOMA
     Dosage: 240 MILLIGRAM
     Route: 065
     Dates: start: 20191011
  4. NIVOLUMAB [Suspect]
     Active Substance: NIVOLUMAB
     Dosage: 240 MILLIGRAM
     Route: 065
     Dates: start: 20191108
  5. NIVOLUMAB [Suspect]
     Active Substance: NIVOLUMAB
     Dosage: 240 MILLIGRAM
     Route: 065
     Dates: start: 20191206
  6. NIVOLUMAB [Suspect]
     Active Substance: NIVOLUMAB
     Dosage: 5.6 MILLIGRAM, ABSOLUT
     Route: 065
     Dates: start: 20200221
  7. NIVOLUMAB [Suspect]
     Active Substance: NIVOLUMAB
     Dosage: 5.6 MILLIGRAM, ABSOLUT
     Route: 065
     Dates: start: 20200110
  8. IPILIMUMAB [Suspect]
     Active Substance: IPILIMUMAB
     Dosage: 17 MILLIGRAM, ABSOLUT
     Route: 065
     Dates: start: 20200110
  9. IPILIMUMAB [Suspect]
     Active Substance: IPILIMUMAB
     Dosage: 17 MILLIGRAM, ABSOLUT
     Route: 065
     Dates: start: 20200221
  10. NIVOLUMAB [Suspect]
     Active Substance: NIVOLUMAB
     Dosage: 5.6 MILLIGRAM, ABSOLUT
     Route: 065
     Dates: start: 20191220
  11. IPILIMUMAB [Suspect]
     Active Substance: IPILIMUMAB
     Indication: PRODUCT USED FOR UNKNOWN INDICATION
     Dosage: 17 MILLIGRAM, ABSOLUT
     Route: 065
     Dates: start: 20191220

REACTIONS (1)
  - Death [Fatal]

NARRATIVE: CASE EVENT DATE: 20200818
